FAERS Safety Report 4389985-X (Version None)
Quarter: 2004Q2

REPORT INFORMATION
  Report Type: 
  Country: None (occurrence: None)
  Receive Date: 20040630
  Receipt Date: 20040616
  Transmission Date: 20050107
  Serious: Yes (Other)
  Sender: FDA-Public Use
  Company Number: 2004040247

PATIENT
  Age: 76 Year
  Sex: Female

DRUGS (1)
  1. DIFLUCAN [Suspect]
     Indication: CANDIDIASIS
     Dosage: UNK, 1 D, ORAL
     Route: 048
     Dates: start: 20040524, end: 20040604

REACTIONS (1)
  - THROMBOCYTOPENIA [None]
